FAERS Safety Report 9378903 (Version 1)
Quarter: 2013Q2

REPORT INFORMATION
  Report Type: Spontaneous
  Country: US (occurrence: None)
  Receive Date: 20130626
  Receipt Date: 20130626
  Transmission Date: 20140414
  Serious: Yes (Hospitalization)
  Sender: FDA-Public Use
  Company Number: SYM-2013-05078

PATIENT
  Age: 52 Year
  Sex: Male

DRUGS (7)
  1. XENAZINE (TETRABENAZINE) (12.5 MILLIGRAM, TABLET) (TETRABENAZINE) [Suspect]
     Indication: DYSKINESIA
     Route: 048
     Dates: start: 20111222
  2. ZYPREXA (OLANZAPINE) [Concomitant]
  3. LORATIDINE [Concomitant]
  4. FLUVOXAMINE (FLUVOXAMINE) (FLUVOXAMINE) [Concomitant]
  5. LISINOPRIL (LISINOPRIL) (LISINOPRIL) [Concomitant]
  6. OMEPRAZOLE (OMEPRAZOLE) (OMEPRAZOLE) [Concomitant]
  7. ASPIRIN (ACETYLSALICYCLIC ACID) (ACETYLSALICYCLIC ACID) [Concomitant]

REACTIONS (1)
  - Heart rate decreased [None]
